FAERS Safety Report 6000468-3 (Version None)
Quarter: 2008Q4

REPORT INFORMATION
  Report Type: 
  Country: None (occurrence: None)
  Receive Date: 20081215
  Receipt Date: 20080808
  Transmission Date: 20090506
  Serious: No
  Sender: FDA-Public Use
  Company Number: US-AMGEN-KDL300505

PATIENT
  Sex: Female

DRUGS (2)
  1. ENBREL [Suspect]
     Indication: RHEUMATOID ARTHRITIS
     Route: 058
     Dates: start: 20070815
  2. METHOTREXATE [Concomitant]

REACTIONS (6)
  - CHEST DISCOMFORT [None]
  - DYSPHAGIA [None]
  - EAR PAIN [None]
  - HEADACHE [None]
  - THROAT TIGHTNESS [None]
  - TOOTH INFECTION [None]
